FAERS Safety Report 4596331-5 (Version None)
Quarter: 2005Q1

REPORT INFORMATION
  Report Type: 
  Country: None (occurrence: None)
  Receive Date: 20050228
  Receipt Date: 20050218
  Transmission Date: 20050727
  Serious: Yes (Hospitalization)
  Sender: FDA-Public Use
  Company Number: 2005PK00290

PATIENT
  Age: 63 Year
  Sex: Female

DRUGS (6)
  1. SEROQUEL [Suspect]
     Dosage: 400 MG DAILY PO
     Route: 048
     Dates: start: 20031211, end: 20040116
  2. TAVOR [Suspect]
     Dosage: 6 MG DAILY
     Dates: start: 20031211
  3. THOMBRAN [Suspect]
     Dosage: 400 DAILY
     Dates: start: 20040106
  4. ARICEPT [Suspect]
     Dosage: 10 MG DAILY
  5. ZELDOX /GFR/ [Suspect]
     Dosage: 80 MG DAILY
     Dates: start: 20040119, end: 20040122
  6. HALDOL [Suspect]
     Dosage: 6 MG DAILY
     Dates: start: 20040118, end: 20040121

REACTIONS (7)
  - ANURIA [None]
  - BLOOD CREATININE INCREASED [None]
  - DRUG INTERACTION [None]
  - HAEMODIALYSIS [None]
  - NEUROLEPTIC MALIGNANT SYNDROME [None]
  - RENAL FAILURE ACUTE [None]
  - RHABDOMYOLYSIS [None]
